FAERS Safety Report 7811226 (Version 2)
Quarter: 2013Q1

REPORT INFORMATION
  Report Type: Spontaneous
  Country: GB (occurrence: None)
  Receive Date: 20110126
  Receipt Date: 20130325
  Transmission Date: 20140127
  Serious: Yes (Life-Threatening, Other)
  Sender: FDA-Public Use
  Company Number: GER/UKI/09/0002012

PATIENT
  Age: 19 Year
  Sex: Female

DRUGS (14)
  1. ONDANSETRON [Suspect]
     Dosage: 8 MG, 3 IN 1 D, INTRAVENOUS, 6 MG, 1 IN 1 D
  2. OMEPRAZOLE [Suspect]
  3. ACYCLOVIR [Suspect]
  4. ACETAMINOPHEN [Suspect]
     Dosage: INTRAVENOUS
     Route: 042
  5. ALLOPURINOL [Suspect]
     Dosage: 1 IN 1 D
     Route: 048
  6. CASPOFUNGIN [Suspect]
     Dosage: 1 IN 1D
     Route: 042
  7. CHLORPHENIRAMINE MALEATE [Suspect]
     Route: 042
  8. CYCLOSPORINE [Suspect]
  9. ETOPOSIDE [Suspect]
     Route: 042
     Dates: start: 20070915, end: 20070915
  10. KETALAR [Suspect]
     Dosage: 1 IN 1 HR
     Route: 042
     Dates: start: 20070921, end: 20070928
  11. MORPHINE [Suspect]
     Dosage: INTRAVENOUS
     Route: 042
  12. NORETHISTERONE (NORETHISTERONE) [Suspect]
     Dosage: 5 MG, 3 IN 1 D, ORAL
     Route: 048
  13. PIPERACILLIN SODIUM\TAZOBACTAM SODIUM [Suspect]
     Route: 042
  14. VORICONAZOLE [Suspect]
     Route: 048

REACTIONS (6)
  - DILATATION INTRAHEPATIC DUCT ACQUIRED [None]
  - HEPATOTOXICITY [None]
  - VENOOCCLUSIVE LIVER DISEASE [None]
  - BLOOD BILIRUBIN INCREASED [None]
  - ALANINE AMINOTRANSFERASE INCREASED [None]
  - BLOOD ALKALINE PHOSPHATASE INCREASED [None]
